FAERS Safety Report 6429310-3 (Version None)
Quarter: 2009Q4

REPORT INFORMATION
  Report Type: 
  Country: None (occurrence: None)
  Receive Date: 20091030
  Receipt Date: 20091023
  Transmission Date: 20100525
  Serious: Yes (Life-Threatening, Hospitalization)
  Sender: FDA-Public Use
  Company Number: SAL/IMIQUIMOD-09

PATIENT
  Sex: Male

DRUGS (10)
  1. IMIQUIMOD [Suspect]
     Indication: ACTINIC KERATOSIS
     Dosage: 1 APPL TWICE A WEEK, 060
  2. ALDARA [Suspect]
     Indication: ACTINIC KERATOSIS
     Dosage: 1 APPL TWICE A WEEK, 060
  3. 1% LIDOCAINE EPINEPHRINE [Concomitant]
  4. OLMESARTAN [Concomitant]
  5. OLMESARTAN MEDOXOMIL AND HYDROCHLOROTHIZIDE [Concomitant]
  6. AMLODIPINE BESYLATE [Concomitant]
  7. SIMVASTATIN [Concomitant]
  8. METOPROLOL SUCCINATE [Concomitant]
  9. AMIODARONE HCL [Concomitant]
  10. WARFARIN SODIUM [Concomitant]

REACTIONS (2)
  - PNEUMONIA [None]
  - RESPIRATORY FAILURE [None]
